FAERS Safety Report 8251097-2 (Version None)
Quarter: 2012Q2

REPORT INFORMATION
  Report Type: 
  Country: None (occurrence: None)
  Receive Date: 20120402
  Receipt Date: 20120328
  Transmission Date: 20120825
  Serious: No
  Sender: FDA-Public Use
  Company Number: US-TEVA-330886USA

PATIENT
  Sex: Female
  Weight: 53.118 kg

DRUGS (2)
  1. IBUPROFEN [Concomitant]
     Indication: HEADACHE
  2. PLAN B ONE-STEP [Suspect]
     Indication: POST COITAL CONTRACEPTION
     Dosage: 1.5 MILLIGRAM;
     Route: 048
     Dates: start: 20120220, end: 20120220

REACTIONS (1)
  - MENSTRUATION IRREGULAR [None]
